FAERS Safety Report 5268008-4 (Version None)
Quarter: 2007Q1

REPORT INFORMATION
  Report Type: 
  Country: None (occurrence: None)
  Receive Date: 20061213
  Receipt Date: 20040818
  Transmission Date: 20070707
  Serious: Yes (Other)
  Sender: FDA-Public Use
  Company Number: 2004UW14558

PATIENT
  Age: 37 Year
  Sex: Female
  Weight: 59.8748 kg

DRUGS (1)
  1. IRESSA [Suspect]
     Indication: ADRENOCORTICAL CARCINOMA
     Dosage: 250 MG PO
     Route: 048
     Dates: start: 20040701

REACTIONS (6)
  - BONE PAIN [None]
  - COUGH [None]
  - DYSPNOEA [None]
  - EYE SWELLING [None]
  - PRURITUS [None]
  - RASH [None]
